FAERS Safety Report 4494170-7 (Version None)
Quarter: 2004Q4

REPORT INFORMATION
  Report Type: 
  Country: None (occurrence: None)
  Receive Date: 20041102
  Receipt Date: 20041015
  Transmission Date: 20050328
  Serious: Yes (Other)
  Sender: FDA-Public Use
  Company Number: FR_041005027

PATIENT
  Age: 60 Year
  Sex: Male

DRUGS (3)
  1. CELANCE (PERGOLIDE MESYLATE) [Suspect]
     Indication: PARKINSON'S DISEASE
     Dosage: 1.25 MG/ 3 DAY
     Dates: start: 20030101, end: 20040601
  2. SINEMET [Concomitant]
  3. TRIVASTAL (PIRIBEDIL) [Concomitant]

REACTIONS (2)
  - AORTIC VALVE INCOMPETENCE [None]
  - MITRAL VALVE INCOMPETENCE [None]
